FAERS Safety Report 7493973-4 (Version None)
Quarter: 2011Q2

REPORT INFORMATION
  Report Type: 
  Country: None (occurrence: None)
  Receive Date: 20110520
  Receipt Date: 20110517
  Transmission Date: 20111010
  Serious: Yes (Hospitalization)
  Sender: FDA-Public Use
  Company Number: BR-ROCHE-777884

PATIENT
  Sex: Male
  Weight: 64 kg

DRUGS (7)
  1. METHOTREXATE [Concomitant]
  2. HYDROXYCHLOROQUINE SULFATE [Concomitant]
  3. HERCEPTIN [Suspect]
     Route: 065
  4. TARCEVA [Suspect]
     Dosage: FREQUENCY: PER DAY
     Route: 048
  5. HYDROCHLOROTHIAZIDE/OLMESARTAN MEDOXOMIL [Concomitant]
     Dosage: 20MG + 12,5MG
  6. METFORMIN HCL [Concomitant]
  7. FORMOTEROL FUMARATE [Concomitant]

REACTIONS (4)
  - SKIN EXFOLIATION [None]
  - DERMATITIS ACNEIFORM [None]
  - DIARRHOEA [None]
  - NAUSEA [None]
